FAERS Safety Report 4655429-3 (Version None)
Quarter: 2005Q2

REPORT INFORMATION
  Report Type: 
  Country: None (occurrence: None)
  Receive Date: 20050505
  Receipt Date: 20050426
  Transmission Date: 20051028
  Serious: Yes (Other)
  Sender: FDA-Public Use
  Company Number: 2005-04-2091

PATIENT
  Sex: Female

DRUGS (2)
  1. NITROGLYCERIN TABLETS [Suspect]
     Indication: CHEST PAIN
     Dosage: ORAL
     Route: 048
  2. ALBUTEROL SULFATE HFA [Suspect]
     Dosage: ORAL AER INH
     Route: 055

REACTIONS (3)
  - FACE INJURY [None]
  - LOSS OF CONSCIOUSNESS [None]
  - SCRATCH [None]
